FAERS Safety Report 12555801 (Version 1)
Quarter: 2016Q3

REPORT INFORMATION
  Report Type: Spontaneous
  Country: AU (occurrence: AU)
  Receive Date: 20160714
  Receipt Date: 20160714
  Transmission Date: 20161109
  Serious: Yes (Death, Other)
  Sender: FDA-Public Use
  Company Number: AU-BRISTOL-MYERS SQUIBB COMPANY-BMS-2016-055369

PATIENT
  Age: 73 Year

DRUGS (5)
  1. NIVOLUMAB [Suspect]
     Active Substance: NIVOLUMAB
     Dosage: 180 UNK, UNK
     Route: 065
     Dates: start: 20160610
  2. NIVOLUMAB [Suspect]
     Active Substance: NIVOLUMAB
     Indication: NON-SMALL CELL LUNG CANCER
     Dosage: 183 MG, UNK
     Route: 065
     Dates: start: 20160405
  3. NIVOLUMAB [Suspect]
     Active Substance: NIVOLUMAB
     Dosage: 180 UNK, UNK
     Route: 065
     Dates: start: 20160627
  4. NIVOLUMAB [Suspect]
     Active Substance: NIVOLUMAB
     Dosage: 180 UNK, UNK
     Route: 065
     Dates: start: 20160524
  5. NIVOLUMAB [Suspect]
     Active Substance: NIVOLUMAB
     Dosage: 183 UNK, UNK
     Route: 065
     Dates: start: 20160409

REACTIONS (1)
  - Death [Fatal]
